FAERS Safety Report 17095333 (Version 1)
Quarter: 2019Q4

REPORT INFORMATION
  Report Type: Spontaneous
  Country: US (occurrence: US)
  Receive Date: 20191104
  Receipt Date: 20191104
  Transmission Date: 20200122
  Serious: No
  Sender: FDA-Public Use
  Company Number: None

PATIENT
  Sex: Female

DRUGS (2)
  1. PEGASYS [Suspect]
     Active Substance: PEGINTERFERON ALFA-2A
     Indication: POLYCYTHAEMIA VERA
     Dosage: ?          OTHER DOSE:150MCG/0.5ML;?
     Route: 058
     Dates: start: 201811, end: 201909
  2. PEGASYS [Suspect]
     Active Substance: PEGINTERFERON ALFA-2A
     Indication: ESSENTIAL THROMBOCYTHAEMIA
     Dosage: ?          OTHER DOSE:150MCG/0.5ML;?
     Route: 058
     Dates: start: 201811, end: 201909

REACTIONS (14)
  - Muscle spasms [None]
  - Alopecia [None]
  - Sepsis [None]
  - Bedridden [None]
  - Constipation [None]
  - Paraesthesia [None]
  - Pneumonia [None]
  - Peripheral swelling [None]
  - Palpitations [None]
  - Stomatitis [None]
  - Bone pain [None]
  - Sneezing [None]
  - Dysphonia [None]
  - Fatigue [None]
